FAERS Safety Report 14590140 (Version 2)
Quarter: 2018Q1

REPORT INFORMATION
  Report Type: Report from Study
  Country: EG (occurrence: EG)
  Receive Date: 20180302
  Receipt Date: 20180315
  Transmission Date: 20180509
  Serious: Yes (Other)
  Sender: FDA-Public Use
  Company Number: EG-ROCHE-2078731

PATIENT

DRUGS (6)
  1. RIBAVIRIN. [Suspect]
     Active Substance: RIBAVIRIN
     Indication: HEPATITIS C
     Dosage: 1000 OR 1200 MG IN PATIENTS LESS THAN 75 OR MORE THAN OR EQUAL TO 75 KG, RESPECTIVELY
     Route: 065
  2. RIBAVIRIN. [Suspect]
     Active Substance: RIBAVIRIN
     Indication: HEPATIC CIRRHOSIS
  3. DACLATASVIR. [Suspect]
     Active Substance: DACLATASVIR
     Indication: HEPATIC CIRRHOSIS
     Route: 065
  4. SOFOSBUVIR [Suspect]
     Active Substance: SOFOSBUVIR
     Indication: HEPATIC CIRRHOSIS
     Route: 065
  5. SOFOSBUVIR [Suspect]
     Active Substance: SOFOSBUVIR
     Indication: HEPATITIS C
  6. DACLATASVIR. [Suspect]
     Active Substance: DACLATASVIR
     Indication: HEPATITIS C

REACTIONS (11)
  - Hepatocellular carcinoma [Unknown]
  - Anaemia [Unknown]
  - Gastrointestinal haemorrhage [Unknown]
  - Headache [Unknown]
  - Hyperbilirubinaemia [Unknown]
  - Ascites [Unknown]
  - Fatigue [Unknown]
  - Photosensitivity reaction [Unknown]
  - Hepatic encephalopathy [Unknown]
  - Pruritus [Unknown]
  - Renal impairment [Unknown]
